FAERS Safety Report 9058441 (Version 2)
Quarter: 2013Q1

REPORT INFORMATION
  Report Type: Spontaneous
  Country: CA (occurrence: CA)
  Receive Date: 20130211
  Receipt Date: 20130305
  Transmission Date: 20140127
  Serious: Yes (Hospitalization)
  Sender: FDA-Public Use
  Company Number: CA-ACTELION-A-US2013-78415

PATIENT
  Age: 48 Year
  Sex: Male

DRUGS (4)
  1. TRACLEER [Suspect]
     Indication: PULMONARY ARTERIAL HYPERTENSION
     Dosage: 125 MG, BID
     Route: 048
  2. TADALAFIL [Concomitant]
     Dosage: 40 MG, OD
  3. WARFARIN [Concomitant]
  4. FUROSEMIDE [Concomitant]

REACTIONS (8)
  - Cardiac pacemaker insertion [Recovered/Resolved]
  - Rib fracture [Recovered/Resolved]
  - Atelectasis [Recovered/Resolved]
  - Post procedural haematoma [Recovered/Resolved]
  - Pneumonia [Unknown]
  - Gastroenteritis norovirus [Recovered/Resolved]
  - Sneezing [Recovered/Resolved]
  - Atrial flutter [Recovered/Resolved]
